FAERS Safety Report 10034730 (Version 1)
Quarter: 2014Q1

REPORT INFORMATION
  Report Type: Spontaneous
  Country: US (occurrence: US)
  Receive Date: 20140325
  Receipt Date: 20140325
  Transmission Date: 20141002
  Serious: Yes (Life-Threatening, Congenital Anomaly, Other)
  Sender: FDA-Public Use
  Company Number: US-PFIZER INC-2014074772

PATIENT
  Sex: Male

DRUGS (13)
  1. ZOLOFT [Suspect]
     Dosage: UNK
     Route: 064
     Dates: start: 1997, end: 200812
  2. SERTRALINE [Concomitant]
     Dosage: UNK
     Route: 064
  3. ALPRAZOLAM [Concomitant]
     Dosage: UNK
     Route: 064
  4. CLINDAMYCIN [Concomitant]
     Dosage: UNK
     Route: 064
  5. LEVAQUIN [Concomitant]
     Dosage: UNK
     Route: 064
  6. AMOXICILLIN-CLAVULANATE [Concomitant]
     Dosage: UNK
     Route: 064
  7. TUSSIONEX [Concomitant]
     Dosage: UNK
     Route: 064
  8. CEFUROXIME [Concomitant]
     Dosage: UNK
     Route: 064
  9. HYDROCODONE/APAP [Concomitant]
     Dosage: UNK
     Route: 064
  10. AMOXICILLIN [Concomitant]
     Dosage: UNK
     Route: 064
  11. GUAPHEN FORTE [Concomitant]
     Dosage: UNK
     Route: 064
  12. ACETAMINOPHEN [Concomitant]
     Dosage: UNK
     Route: 064
  13. GESTICARE [Concomitant]
     Dosage: UNK
     Route: 064

REACTIONS (4)
  - Maternal exposure during pregnancy [Unknown]
  - Congenital anomaly [Unknown]
  - Fallot^s tetralogy [Unknown]
  - Pulmonary artery atresia [Unknown]
